FAERS Safety Report 5912603-3 (Version None)
Quarter: 2008Q4

REPORT INFORMATION
  Report Type: 
  Country: None (occurrence: None)
  Receive Date: 20081008
  Receipt Date: 20080930
  Transmission Date: 20090506
  Serious: Yes (Hospitalization, Disabling, Other)
  Sender: FDA-Public Use
  Company Number: PHHO2006CL21444

PATIENT
  Sex: Female
  Weight: 68.5 kg

DRUGS (2)
  1. RAD 666 RAD+TAB+PTR [Suspect]
     Indication: RENAL TRANSPLANT
     Dosage: 0.75 MG, QD
     Route: 048
     Dates: start: 20061117, end: 20061219
  2. NEORAL [Suspect]
     Indication: RENAL TRANSPLANT
     Dosage: UNK, UNK
     Dates: start: 20061116, end: 20061116

REACTIONS (8)
  - GRAFT LOSS [None]
  - KIDNEY TRANSPLANT REJECTION [None]
  - MACULOPATHY [None]
  - NEPHROPATHY TOXIC [None]
  - OLIGURIA [None]
  - REMOVAL OF RENAL TRANSPLANT [None]
  - RENAL TUBULAR NECROSIS [None]
  - VISION BLURRED [None]
